FAERS Safety Report 15813408 (Version 1)
Quarter: 2019Q1

REPORT INFORMATION
  Report Type: Spontaneous
  Country: US (occurrence: US)
  Receive Date: 20190111
  Receipt Date: 20190111
  Transmission Date: 20190417
  Serious: Yes (Life-Threatening, Disabling, Other)
  Sender: FDA-Public Use
  Company Number: None

PATIENT
  Age: 53 Year
  Sex: Male
  Weight: 99 kg

DRUGS (9)
  1. LISINOPRIL. [Concomitant]
     Active Substance: LISINOPRIL
  2. CREATINE [Concomitant]
     Active Substance: CREATINE
  3. OMEGA-3 KRILL OIL [Concomitant]
  4. OXYCODONE [Concomitant]
     Active Substance: OXYCODONE
  5. PROBIOTICS [Concomitant]
     Active Substance: PROBIOTICS NOS
  6. GARLIQUE [Concomitant]
     Active Substance: GARLIC
  7. LYRICA [Suspect]
     Active Substance: PREGABALIN
     Indication: PAIN
     Dosage: ?          QUANTITY:60 CAPSULE(S);?
     Route: 048
     Dates: start: 20170526, end: 20170710
  8. MULTIVITAMIN [Concomitant]
     Active Substance: VITAMINS
  9. ACIA EXTRACT [Concomitant]

REACTIONS (5)
  - Weight decreased [None]
  - Dehydration [None]
  - Hypertonic bladder [None]
  - Type 2 diabetes mellitus [None]
  - Fatigue [None]

NARRATIVE: CASE EVENT DATE: 20170626
